FAERS Safety Report 9386633 (Version 3)
Quarter: 2013Q4

REPORT INFORMATION
  Report Type: Spontaneous
  Country: JP (occurrence: JP)
  Receive Date: 20130708
  Receipt Date: 20131007
  Transmission Date: 20140711
  Serious: Yes (Hospitalization, Other)
  Sender: FDA-Public Use
  Company Number: PHHY2013JP071261

PATIENT
  Age: 24 Year
  Sex: Male

DRUGS (2)
  1. SANDOSTATIN [Suspect]
     Indication: ACROMEGALY
     Dosage: UNK
     Route: 058
     Dates: start: 200612, end: 200702
  2. CABERGOLINE [Concomitant]
     Dosage: UNK UKN, UNK

REACTIONS (11)
  - Adrenal adenoma [Unknown]
  - Cushing^s syndrome [Unknown]
  - Blood corticotrophin decreased [Unknown]
  - Blood cortisol increased [Unknown]
  - Cortisol free urine increased [Unknown]
  - Body mass index increased [Unknown]
  - Obesity [Unknown]
  - Diabetes mellitus [Unknown]
  - Diabetic ketoacidosis [Not Recovered/Not Resolved]
  - Hypertension [Unknown]
  - Blood glucose increased [Unknown]
